FAERS Safety Report 6866480-7 (Version None)
Quarter: 2010Q3

REPORT INFORMATION
  Report Type: 
  Country: None (occurrence: None)
  Receive Date: 20100722
  Receipt Date: 20100714
  Transmission Date: 20110219
  Serious: Yes (Other)
  Sender: FDA-Public Use
  Company Number: GR-GILEAD-2010-0030432

PATIENT
  Age: 57 Year
  Sex: Female

DRUGS (1)
  1. HEPSERA [Suspect]

REACTIONS (2)
  - OSTEOMALACIA [None]
  - VITAMIN D DEFICIENCY [None]
